FAERS Safety Report 17761859 (Version 2)
Quarter: 2020Q2

REPORT INFORMATION
  Report Type: Report from Study
  Country: US (occurrence: US)
  Receive Date: 20200508
  Receipt Date: 20200519
  Transmission Date: 20200714
  Serious: Yes (Death, Other)
  Sender: FDA-Public Use
  Company Number: US-ACTELION-A-NJ2018-169690

PATIENT
  Sex: Female

DRUGS (1)
  1. OPSUMIT [Suspect]
     Active Substance: MACITENTAN
     Indication: PULMONARY ARTERIAL HYPERTENSION
     Dosage: 10 MG, QD
     Route: 048
     Dates: start: 20151006

REACTIONS (7)
  - Malaise [Unknown]
  - Hypertension [Unknown]
  - Interstitial lung disease [Fatal]
  - Urinary tract infection [Unknown]
  - Lung transplant [Unknown]
  - Pulmonary hypertension [Fatal]
  - Systemic scleroderma [Fatal]
